FAERS Safety Report 8806038 (Version 1)
Quarter: 2012Q4

REPORT INFORMATION
  Report Type: Spontaneous
  Country: US (occurrence: None)
  Receive Date: 20120919
  Receipt Date: 20120919
  Transmission Date: 20130627
  Serious: Yes (Hospitalization)
  Sender: FDA-Public Use
  Company Number: None

PATIENT
  Sex: Female

DRUGS (1)
  1. SIMPONI [Suspect]
     Route: 058
     Dates: start: 20120316, end: 20120801

REACTIONS (3)
  - Cardiac disorder [None]
  - Oedema peripheral [None]
  - Nausea [None]
